FAERS Safety Report 5103293-0 (Version None)
Quarter: 2006Q3

REPORT INFORMATION
  Report Type: 
  Country: None (occurrence: None)
  Receive Date: 20060908
  Receipt Date: 20060908
  Transmission Date: 20061208
  Serious: Yes (Life-Threatening, Hospitalization, Other)
  Sender: FDA-Public Use
  Company Number: 2006AL002531

PATIENT
  Age: 64 Year
  Sex: Female

DRUGS (6)
  1. NAPROXEN [Suspect]
     Indication: ARTHRALGIA
     Dosage: 250 MG TID PO
     Route: 048
     Dates: start: 20051004
  2. AMOXICILLIN [Concomitant]
  3. ACETAMINOPHEN W/ CODEINE [Concomitant]
  4. KLIOVANCE [Concomitant]
  5. BUMETANIDE [Concomitant]
  6. ADCAL-D3 [Concomitant]

REACTIONS (4)
  - ENCEPHALITIS [None]
  - HEPATIC NECROSIS [None]
  - JAUNDICE [None]
  - LIVER TRANSPLANT [None]
